FAERS Safety Report 4705642-1 (Version None)
Quarter: 2005Q2

REPORT INFORMATION
  Report Type: 
  Country: None (occurrence: None)
  Receive Date: 20050628
  Receipt Date: 20050614
  Transmission Date: 20051028
  Serious: Yes (Disabling, Other)
  Sender: FDA-Public Use
  Company Number: FR_050506382

PATIENT
  Age: 71 Year
  Sex: Female
  Weight: 58 kg

DRUGS (3)
  1. GEMZAR [Suspect]
     Indication: BREAST CANCER
     Dosage: 1000 MG/M2/1 OTHER
     Dates: start: 20041123, end: 20050511
  2. NIDREL (NITRENDIPINE) [Concomitant]
  3. LIPANOR (CIPROFIBRATE) [Concomitant]

REACTIONS (3)
  - ABNORMAL BEHAVIOUR [None]
  - CEREBROVASCULAR ACCIDENT [None]
  - THROMBOCYTHAEMIA [None]
